FAERS Safety Report 15962338 (Version 1)
Quarter: 2019Q1

REPORT INFORMATION
  Report Type: Spontaneous
  Country: IE (occurrence: IE)
  Receive Date: 20190214
  Receipt Date: 20190214
  Transmission Date: 20190417
  Serious: Yes (Life-Threatening)
  Sender: FDA-Public Use
  Company Number: IE-ALLERGAN-1906132US

PATIENT
  Age: 83 Year
  Sex: Male

DRUGS (4)
  1. NU-SEALS [Concomitant]
     Dosage: 75 MG, QD
  2. EZETIMIBE. [Concomitant]
     Active Substance: EZETIMIBE
  3. EXOCIN [Suspect]
     Active Substance: OFLOXACIN
     Indication: CATARACT OPERATION
     Route: 047
     Dates: start: 20181215
  4. IMDUR [Concomitant]
     Active Substance: ISOSORBIDE MONONITRATE

REACTIONS (2)
  - Heart rate decreased [Recovered/Resolved]
  - Loss of consciousness [Recovered/Resolved]

NARRATIVE: CASE EVENT DATE: 20181219
